FAERS Safety Report 20000233 (Version 1)
Quarter: 2021Q4

REPORT INFORMATION
  Report Type: Report from Study
  Country: FR (occurrence: FR)
  Receive Date: 20211026
  Receipt Date: 20211026
  Transmission Date: 20220304
  Serious: Yes (Hospitalization)
  Sender: FDA-Public Use
  Company Number: FR-CHUNICE-202100002

PATIENT

DRUGS (1)
  1. EYLEA [Suspect]
     Active Substance: AFLIBERCEPT
     Indication: Eye disorder prophylaxis
     Dosage: UNK
     Route: 031
     Dates: start: 20190426, end: 20210104

REACTIONS (1)
  - Lens extraction [Recovered/Resolved]

NARRATIVE: CASE EVENT DATE: 20210204
